FAERS Safety Report 7861867-8 (Version None)
Quarter: 2011Q4

REPORT INFORMATION
  Report Type: 
  Country: None (occurrence: None)
  Receive Date: 20111027
  Receipt Date: 20101110
  Transmission Date: 20120403
  Serious: No
  Sender: FDA-Public Use
  Company Number: US-AMGEN-USASP2010005536

PATIENT
  Age: 62 Year
  Sex: Female

DRUGS (4)
  1. METHOTREXATE [Concomitant]
     Dosage: UNK
  2. PREDNISONE [Concomitant]
     Dosage: UNK
  3. ENBREL [Suspect]
     Indication: PRODUCT USED FOR UNKNOWN INDICATION
     Dosage: UNK, ONCE A WEEK
     Dates: start: 20100101
  4. ENBREL [Suspect]
     Dosage: UNK
     Dates: start: 20101105

REACTIONS (2)
  - INJECTION SITE REACTION [None]
  - CONTUSION [None]
